FAERS Safety Report 15822391 (Version 2)
Quarter: 2019Q1

REPORT INFORMATION
  Report Type: Report from Study
  Country: US (occurrence: US)
  Receive Date: 20190114
  Receipt Date: 20190123
  Transmission Date: 20190417
  Serious: Yes (Hospitalization, Other)
  Sender: FDA-Public Use
  Company Number: US-AMGEN-USACT2019004165

PATIENT
  Age: 68 Year
  Sex: Female
  Weight: 61.6 kg

DRUGS (1)
  1. ROMIPLOSTIM [Suspect]
     Active Substance: ROMIPLOSTIM
     Indication: THROMBOCYTOPENIA
     Dosage: 600 MUG, QWK
     Route: 058
     Dates: start: 20180207, end: 20181231

REACTIONS (2)
  - Sinus tachycardia [Unknown]
  - Hypoxia [Unknown]

NARRATIVE: CASE EVENT DATE: 20190107
